FAERS Safety Report 7776720-8 (Version None)
Quarter: 2011Q3

REPORT INFORMATION
  Report Type: 
  Country: None (occurrence: None)
  Receive Date: 20110926
  Receipt Date: 20110920
  Transmission Date: 20111222
  Serious: Yes (Hospitalization)
  Sender: FDA-Public Use
  Company Number: DK-JNJFOC-20110908502

PATIENT
  Age: 64 Year
  Sex: Male
  Weight: 100 kg

DRUGS (1)
  1. USTEKINUMAB [Suspect]
     Indication: DERMATITIS CONTACT
     Dosage: WEEK 0
     Route: 058

REACTIONS (5)
  - ECZEMA [None]
  - STAPHYLOCOCCAL INFECTION [None]
  - OFF LABEL USE [None]
  - DRUG INEFFECTIVE [None]
  - STREPTOCOCCAL INFECTION [None]
